FAERS Safety Report 5620171-9 (Version None)
Quarter: 2008Q1

REPORT INFORMATION
  Report Type: 
  Country: None (occurrence: None)
  Receive Date: 20080208
  Receipt Date: 20080128
  Transmission Date: 20080703
  Serious: Yes (Hospitalization)
  Sender: FDA-Public Use
  Company Number: TW-ROCHE-545494

PATIENT
  Age: 35 Year
  Sex: Male

DRUGS (2)
  1. PEG-INTERFERON A-2A (RO 25-8310) [Suspect]
     Route: 065
  2. REBETOL [Suspect]
     Route: 065

REACTIONS (1)
  - THYROTOXIC PERIODIC PARALYSIS [None]
